FAERS Safety Report 9516684 (Version 1)
Quarter: 2013Q3

REPORT INFORMATION
  Report Type: Spontaneous
  Country: US (occurrence: None)
  Receive Date: 20130910
  Receipt Date: 20130910
  Transmission Date: 20140515
  Serious: Yes (Other)
  Sender: FDA-Public Use
  Company Number: None

PATIENT
  Age: 14 Year
  Sex: Female
  Weight: 2 kg

DRUGS (1)
  1. DEFENSOR 3 RABIES [Suspect]

REACTIONS (1)
  - Vomiting [None]
